FAERS Safety Report 9242816 (Version 2)
Quarter: 2013Q2

REPORT INFORMATION
  Report Type: Spontaneous
  Country: TR (occurrence: TR)
  Receive Date: 20130419
  Receipt Date: 20130506
  Transmission Date: 20140414
  Serious: Yes (Death, Other)
  Sender: FDA-Public Use
  Company Number: TR-ROCHE-1215551

PATIENT
  Sex: Male
  Weight: 4.07 kg

DRUGS (7)
  1. ACTILYSE [Suspect]
     Indication: VENA CAVA THROMBOSIS
     Route: 065
  2. ACTILYSE [Suspect]
     Indication: RENAL VEIN THROMBOSIS
  3. HEPARIN [Suspect]
     Indication: VENA CAVA THROMBOSIS
     Route: 065
  4. HEPARIN [Suspect]
     Indication: RENAL VEIN THROMBOSIS
  5. FRESH FROZEN PLASMA [Concomitant]
  6. GLUCOSE [Concomitant]
  7. FOLIC ACID [Concomitant]

REACTIONS (4)
  - Renal failure acute [Fatal]
  - Haemorrhage [Unknown]
  - Hypofibrinogenaemia [Unknown]
  - Drug ineffective [Unknown]
